FAERS Safety Report 15440013 (Version 1)
Quarter: 2018Q3

REPORT INFORMATION
  Report Type: Report from Study
  Country: US (occurrence: US)
  Receive Date: 20180928
  Receipt Date: 20180928
  Transmission Date: 20181010
  Serious: Yes (Hospitalization, Other)
  Sender: FDA-Public Use
  Company Number: US-BAYER-2018-142073

PATIENT
  Age: 59 Year
  Sex: Female

DRUGS (2)
  1. STIVARGA [Suspect]
     Active Substance: REGORAFENIB
     Indication: COLON CANCER
     Dosage: DAILY DOSE OF 80 MG
     Route: 048
     Dates: start: 20180807, end: 20180919
  2. STIVARGA [Suspect]
     Active Substance: REGORAFENIB
     Indication: COLON CANCER
     Dosage: DAILY DOSE 120 MG FOR 21 ON, 7 OFF
     Route: 048
     Dates: start: 20180721, end: 20180730

REACTIONS (48)
  - Stoma complication [None]
  - Weight decreased [Not Recovered/Not Resolved]
  - Photophobia [None]
  - Tachycardia [None]
  - Pain in extremity [None]
  - Dyspepsia [None]
  - Blood lactate dehydrogenase increased [None]
  - Back pain [None]
  - Early satiety [None]
  - Abdominal pain upper [Not Recovered/Not Resolved]
  - Carcinoembryonic antigen increased [None]
  - Hyperbilirubinaemia [Not Recovered/Not Resolved]
  - Intestinal haemorrhage [None]
  - Blood alkaline phosphatase increased [None]
  - Dysphonia [None]
  - Chromaturia [Not Recovered/Not Resolved]
  - Gastrointestinal motility disorder [Not Recovered/Not Resolved]
  - Dysgeusia [Not Recovered/Not Resolved]
  - Abdominal distension [None]
  - Pain in extremity [None]
  - Parosmia [Not Recovered/Not Resolved]
  - Liver function test increased [None]
  - Erythema [Not Recovered/Not Resolved]
  - Hyperkeratosis [None]
  - Diarrhoea [Not Recovered/Not Resolved]
  - Dry skin [None]
  - Fatigue [Not Recovered/Not Resolved]
  - Ear pain [Recovered/Resolved]
  - Ascites [Not Recovered/Not Resolved]
  - Musculoskeletal disorder [None]
  - Off label use [None]
  - Nausea [Not Recovered/Not Resolved]
  - Blood bilirubin increased [None]
  - Asthenopia [None]
  - Exercise tolerance decreased [Not Recovered/Not Resolved]
  - Oral pain [Recovered/Resolved]
  - Musculoskeletal pain [Recovered/Resolved]
  - Palmar-plantar erythrodysaesthesia syndrome [Not Recovered/Not Resolved]
  - Vitamin D decreased [Not Recovered/Not Resolved]
  - Anxiety [None]
  - Blood albumin decreased [None]
  - Blister [None]
  - Epistaxis [None]
  - Headache [Not Recovered/Not Resolved]
  - Pain in extremity [Recovered/Resolved]
  - Aspartate aminotransferase increased [None]
  - Ocular icterus [Not Recovered/Not Resolved]
  - Visual impairment [Not Recovered/Not Resolved]

NARRATIVE: CASE EVENT DATE: 2018
